FAERS Safety Report 5223116-9 (Version None)
Quarter: 2007Q1

REPORT INFORMATION
  Report Type: 
  Country: None (occurrence: None)
  Receive Date: 20061201
  Receipt Date: 20060724
  Transmission Date: 20070707
  Serious: No
  Sender: FDA-Public Use
  Company Number: 2006PV018170

PATIENT
  Age: 71 Year
  Sex: Female

DRUGS (4)
  1. BYETTA [Suspect]
     Indication: DIABETES MELLITUS NON-INSULIN-DEPENDENT
     Dosage: 5 MCG QD SC
     Route: 058
     Dates: start: 20060501
  2. AMARYL [Concomitant]
  3. METFORMIN HCL [Concomitant]
  4. CRESTOR [Concomitant]

REACTIONS (9)
  - BLOOD GLUCOSE DECREASED [None]
  - COLD SWEAT [None]
  - CONDITION AGGRAVATED [None]
  - DIARRHOEA [None]
  - FLATULENCE [None]
  - FREQUENT BOWEL MOVEMENTS [None]
  - HYPERHIDROSIS [None]
  - PAIN [None]
  - PARAESTHESIA [None]
